FAERS Safety Report 14756639 (Version 3)
Quarter: 2018Q3

REPORT INFORMATION
  Report Type: Spontaneous
  Country: US (occurrence: US)
  Receive Date: 20180413
  Receipt Date: 20180703
  Transmission Date: 20181010
  Serious: No
  Sender: FDA-Public Use
  Company Number: US-GLAXOSMITHKLINE-US2018062492

PATIENT
  Sex: Female

DRUGS (4)
  1. AMLODIPINE [Concomitant]
     Active Substance: AMLODIPINE BESYLATE
  2. ATORVASTATIN [Concomitant]
     Active Substance: ATORVASTATIN
  3. BREO ELLIPTA [Suspect]
     Active Substance: FLUTICASONE FUROATE\VILANTEROL TRIFENATATE
     Indication: CHRONIC OBSTRUCTIVE PULMONARY DISEASE
     Dosage: 1 PUFF(S), QD
     Route: 055
     Dates: start: 20180220
  4. ALENDRONATE [Concomitant]
     Active Substance: ALENDRONATE SODIUM

REACTIONS (7)
  - Device defective [Unknown]
  - Feeling abnormal [Unknown]
  - Product quality issue [Unknown]
  - Wrong technique in device usage process [Unknown]
  - Drug dose omission [Unknown]
  - Asthenia [Unknown]
  - Circumstance or information capable of leading to medication error [Unknown]
